FAERS Safety Report 9403392 (Version 1)
Quarter: 2013Q3

REPORT INFORMATION
  Report Type: Spontaneous
  Country: TT (occurrence: TT)
  Receive Date: 20130716
  Receipt Date: 20130716
  Transmission Date: 20140515
  Serious: Yes (Death)
  Sender: FDA-Public Use
  Company Number: TT-B.I. PHARMACEUTICALS,INC./RIDGEFIELD-2013-CN-01229CN

PATIENT
  Age: 72 Year
  Sex: Female

DRUGS (1)
  1. MICARDIS [Suspect]
     Indication: HYPERTENSION
     Dates: start: 201301

REACTIONS (1)
  - Myocardial infarction [Fatal]
